FAERS Safety Report 5303321-3 (Version None)
Quarter: 2007Q2

REPORT INFORMATION
  Report Type: 
  Country: None (occurrence: None)
  Receive Date: 20070420
  Receipt Date: 20070410
  Transmission Date: 20071010
  Serious: Yes (Hospitalization, Other)
  Sender: FDA-Public Use
  Company Number: GB-GLAXOSMITHKLINE-B0466955A

PATIENT
  Age: 46 Year
  Sex: Female

DRUGS (4)
  1. CEFUROXIME SODIUM [Suspect]
     Route: 042
  2. TRIMETHOPRIM [Suspect]
     Indication: URINARY TRACT INFECTION
     Route: 065
  3. CLARITHROMYCIN [Suspect]
     Route: 042
  4. OXYGEN [Concomitant]
     Route: 065

REACTIONS (9)
  - ABDOMINAL PAIN [None]
  - ABDOMINAL TENDERNESS [None]
  - BLOOD PRESSURE DECREASED [None]
  - BODY TEMPERATURE INCREASED [None]
  - CLOSTRIDIUM COLITIS [None]
  - DIARRHOEA [None]
  - MEGACOLON [None]
  - SEPSIS [None]
  - VOMITING [None]
